FAERS Safety Report 14120141 (Version 3)
Quarter: 2018Q4

REPORT INFORMATION
  Report Type: Report from Study
  Country: JP (occurrence: JP)
  Receive Date: 20171024
  Receipt Date: 20181113
  Transmission Date: 20190204
  Serious: Yes (Death)
  Sender: FDA-Public Use
  Company Number: JP-DEPOMED, INC.-JP-2017DEP002047

PATIENT
  Sex: Male
  Weight: 38 kg

DRUGS (7)
  1. TAPENTADOL HYDROCHLORIDE [Suspect]
     Active Substance: TAPENTADOL HYDROCHLORIDE
     Indication: CANCER PAIN
     Dosage: 25 MG, QD
     Route: 048
     Dates: start: 20160317, end: 20160322
  2. CALONAL [Concomitant]
     Active Substance: ACETAMINOPHEN
     Indication: CANCER PAIN
     Dosage: UNK
     Dates: start: 20160208, end: 20160324
  3. FUROSEMIDE. [Concomitant]
     Active Substance: FUROSEMIDE
     Indication: RENAL FAILURE
     Dosage: UNK
     Dates: start: 20160209, end: 20160324
  4. CEFDINIR. [Concomitant]
     Active Substance: CEFDINIR
     Indication: BLADDER CANCER
     Dosage: UNK
     Dates: start: 20160305, end: 20160309
  5. MAGMITT [Concomitant]
     Active Substance: MAGNESIUM OXIDE
     Indication: PROPHYLAXIS
     Dosage: UNK
     Dates: start: 20160218, end: 20160324
  6. FENTOS [Concomitant]
     Active Substance: FENTANYL
     Indication: CANCER PAIN
     Dosage: UNK
     Dates: start: 20160323, end: 20160406
  7. LYRICA [Concomitant]
     Active Substance: PREGABALIN
     Indication: CANCER PAIN
     Dosage: UNK
     Dates: start: 20160212, end: 20160324

REACTIONS (1)
  - Malignant neoplasm progression [Fatal]

NARRATIVE: CASE EVENT DATE: 2016
